FAERS Safety Report 19900318 (Version 1)
Quarter: 2021Q3

REPORT INFORMATION
  Report Type: Report from Study
  Country: IT (occurrence: IT)
  Receive Date: 20210929
  Receipt Date: 20210929
  Transmission Date: 20211014
  Serious: Yes (Other)
  Sender: FDA-Public Use
  Company Number: IT-MYLANLABS-2021M1066412

PATIENT
  Age: 51 Year
  Sex: Male

DRUGS (1)
  1. QUETIAPINE. [Suspect]
     Active Substance: QUETIAPINE
     Indication: PRODUCT USED FOR UNKNOWN INDICATION
     Dosage: 1.2 GRAM, TOTAL
     Route: 048
     Dates: start: 20210418

REACTIONS (5)
  - Tachycardia [Recovering/Resolving]
  - Back pain [Recovering/Resolving]
  - Drug abuse [Recovering/Resolving]
  - Pelvic pain [Recovering/Resolving]
  - Anuria [Recovering/Resolving]

NARRATIVE: CASE EVENT DATE: 20210418
